FAERS Safety Report 20822859 (Version 2)
Quarter: 2022Q2

REPORT INFORMATION
  Report Type: Report from Study
  Country: CA (occurrence: CA)
  Receive Date: 20220512
  Receipt Date: 20220524
  Transmission Date: 20220720
  Serious: Yes (Hospitalization, Other)
  Sender: FDA-Public Use
  Company Number: CA-BRISTOL-MYERS SQUIBB COMPANY-2022-013395

PATIENT
  Age: 57 Year
  Sex: Male
  Weight: 78.9 kg

DRUGS (4)
  1. OPDIVO [Suspect]
     Active Substance: NIVOLUMAB
     Indication: Oesophageal carcinoma
     Route: 042
     Dates: start: 20220311, end: 20220429
  2. DEXAMETHASONE [Concomitant]
     Active Substance: DEXAMETHASONE
  3. SENOKOT [Concomitant]
     Active Substance: SENNOSIDES
  4. HYDROMORPHONE [Concomitant]
     Active Substance: HYDROMORPHONE

REACTIONS (19)
  - Haemoglobin decreased [Not Recovered/Not Resolved]
  - Haematochezia [Unknown]
  - Contusion [Unknown]
  - Muscle spasms [Not Recovered/Not Resolved]
  - Fatigue [Not Recovered/Not Resolved]
  - Muscular weakness [Not Recovered/Not Resolved]
  - Dyspepsia [Recovering/Resolving]
  - Tenderness [Recovering/Resolving]
  - Mood altered [Unknown]
  - Somnolence [Not Recovered/Not Resolved]
  - Swelling [Recovered/Resolved]
  - Pain [Unknown]
  - Oedema [Unknown]
  - Polyuria [Unknown]
  - Muscular weakness [Unknown]
  - Paraesthesia [Recovered/Resolved]
  - Dyspnoea [Unknown]
  - Productive cough [Unknown]
  - Dizziness [Unknown]
